FAERS Safety Report 12978491 (Version 2)
Quarter: 2016Q4

REPORT INFORMATION
  Report Type: Spontaneous
  Country: FR (occurrence: FR)
  Receive Date: 20161128
  Receipt Date: 20161128
  Transmission Date: 20170207
  Serious: Yes (Hospitalization)
  Sender: FDA-Public Use
  Company Number: FR-JNJFOC-20161118253

PATIENT
  Age: 86 Year
  Sex: Male

DRUGS (17)
  1. CONTRAMAL [Suspect]
     Active Substance: TRAMADOL HYDROCHLORIDE
     Indication: PAIN
     Route: 065
     Dates: end: 20161021
  2. PARACETAMOL [Concomitant]
     Active Substance: ACETAMINOPHEN
     Route: 048
  3. TERBUTALINE SULFATE. [Concomitant]
     Active Substance: TERBUTALINE SULFATE
     Route: 055
  4. SODIUM BICARBONATE. [Concomitant]
     Active Substance: SODIUM BICARBONATE
     Route: 065
  5. CLARELUX [Concomitant]
     Active Substance: CLOBETASOL PROPIONATE
     Dosage: 500UG/G
     Route: 003
  6. ARTISIAL [Concomitant]
     Active Substance: CALCIUM CHLORIDE\MAGNESIUM CHLORIDE\POTASSIUM CHLORIDE\POTASSIUM PHOSPHATE, DIBASIC\POTASSIUM PHOSPHATE, MONOBASIC\SODIUM CHLORIDE
     Route: 002
  7. SOLU-MEDROL [Concomitant]
     Active Substance: METHYLPREDNISOLONE SODIUM SUCCINATE
     Dosage: 40MG/2ML
     Route: 051
  8. PLITICAN [Concomitant]
     Active Substance: ALIZAPRIDE HYDROCHLORIDE
     Route: 065
  9. MODOPAR [Concomitant]
     Active Substance: BENSERAZIDE HYDROCHLORIDE\LEVODOPA
     Route: 048
  10. LYRICA [Concomitant]
     Active Substance: PREGABALIN
     Route: 048
  11. BUDESONIDE. [Concomitant]
     Active Substance: BUDESONIDE
     Route: 045
  12. LANSOYL [Concomitant]
     Active Substance: MINERAL OIL
     Route: 048
  13. NORMACOL [Concomitant]
     Active Substance: KARAYA GUM
     Route: 054
  14. DUROGESIC [Suspect]
     Active Substance: FENTANYL
     Indication: PAIN
     Route: 062
     Dates: start: 20160928
  15. IPRATROPIUM BROMIDE. [Concomitant]
     Active Substance: IPRATROPIUM BROMIDE
     Route: 055
  16. VENLAFAXINE [Concomitant]
     Active Substance: VENLAFAXINE HYDROCHLORIDE
     Route: 048
  17. SCOPOLAMIN [Concomitant]
     Active Substance: SCOPOLAMINE
     Route: 062

REACTIONS (8)
  - Pupillary light reflex tests abnormal [Unknown]
  - Somnolence [Recovered/Resolved]
  - Asthenia [Recovered/Resolved]
  - Tremor [Recovered/Resolved]
  - Faecaloma [Unknown]
  - Confusional state [Recovered/Resolved]
  - Faecal vomiting [Unknown]
  - Tongue dry [Unknown]

NARRATIVE: CASE EVENT DATE: 20161021
